FAERS Safety Report 16115027 (Version 1)
Quarter: 2019Q1

REPORT INFORMATION
  Report Type: Spontaneous
  Country: FR (occurrence: FR)
  Receive Date: 20190325
  Receipt Date: 20190325
  Transmission Date: 20190418
  Serious: Yes (Hospitalization)
  Sender: FDA-Public Use
  Company Number: FR-ROCHE-2285798

PATIENT
  Age: 66 Year
  Sex: Female

DRUGS (3)
  1. VALIUM [Suspect]
     Active Substance: DIAZEPAM
     Indication: DRUG DEPENDENCE
     Route: 048
     Dates: start: 20180710, end: 20180710
  2. METHADONE AP-HP [Suspect]
     Active Substance: METHADONE HYDROCHLORIDE
     Indication: DRUG DEPENDENCE
     Route: 048
     Dates: start: 20180710, end: 20180710
  3. LOXAPAC [Suspect]
     Active Substance: LOXAPINE
     Indication: DRUG DEPENDENCE
     Route: 048
     Dates: start: 20180710, end: 20180710

REACTIONS (2)
  - Altered state of consciousness [Recovering/Resolving]
  - Bradypnoea [Recovering/Resolving]

NARRATIVE: CASE EVENT DATE: 20180710
